FAERS Safety Report 23944366 (Version 1)
Quarter: 2024Q2

REPORT INFORMATION
  Report Type: Spontaneous
  Country: DE (occurrence: DE)
  Receive Date: 20240606
  Receipt Date: 20240606
  Transmission Date: 20240715
  Serious: Yes (Hospitalization)
  Sender: FDA-Public Use
  Company Number: DE-NOVITIUMPHARMA-2024DENVP00989

PATIENT
  Age: 56 Year
  Sex: Male

DRUGS (1)
  1. SILDENAFIL CITRATE [Suspect]
     Active Substance: SILDENAFIL CITRATE
     Indication: Product used for unknown indication
     Dosage: ONE TABLET

REACTIONS (6)
  - Methaemoglobinaemia [Recovered/Resolved]
  - Toxicity to various agents [Unknown]
  - Product contamination [Unknown]
  - Intentional product misuse [Unknown]
  - Physical product label issue [Unknown]
  - Product blister packaging issue [Unknown]
